FAERS Safety Report 8369262-2 (Version None)
Quarter: 2012Q2

REPORT INFORMATION
  Report Type: 
  Country: None (occurrence: None)
  Receive Date: 20120518
  Receipt Date: 20120510
  Transmission Date: 20120825
  Serious: Yes (Death, Other)
  Sender: FDA-Public Use
  Company Number: PHHY2012US042106

PATIENT
  Age: 63 Year
  Sex: Female

DRUGS (10)
  1. TACROLIMUS [Concomitant]
     Indication: GRAFT VERSUS HOST DISEASE
  2. HYDROXYUREA [Concomitant]
  3. HEPARIN [Concomitant]
  4. ELTROMBOPAG [Concomitant]
  5. DECITABINE [Concomitant]
  6. MYCOPHENOLATE MOFETIL [Concomitant]
     Indication: PROPHYLAXIS
  7. DEFERASIROX [Suspect]
  8. IDARUBICIN HCL [Concomitant]
  9. CYTARABINE [Concomitant]
  10. VALGANCICLOVIR [Concomitant]

REACTIONS (2)
  - DEATH [None]
  - DEEP VEIN THROMBOSIS [None]
